FAERS Safety Report 10570304 (Version 1)
Quarter: 2014Q4

REPORT INFORMATION
  Report Type: Spontaneous
  Country: US (occurrence: None)
  Receive Date: 20141106
  Receipt Date: 20141106
  Transmission Date: 20150529
  Serious: Yes (Other)
  Sender: FDA-Public Use
  Company Number: None

PATIENT
  Age: 74 Year
  Sex: Male
  Weight: 70.31 kg

DRUGS (1)
  1. ASMANEX [Suspect]
     Active Substance: MOMETASONE FUROATE
     Indication: ASTHMA
     Dosage: 1 DOSE, ONCE DAILY, INHALATION
     Route: 055

REACTIONS (4)
  - Oropharyngeal pain [None]
  - Dysphonia [None]
  - Odynophagia [None]
  - Speech disorder [None]

NARRATIVE: CASE EVENT DATE: 20140915
